FAERS Safety Report 4770822-6 (Version None)
Quarter: 2005Q3

REPORT INFORMATION
  Report Type: 
  Country: None (occurrence: None)
  Receive Date: 20050914
  Receipt Date: 20050906
  Transmission Date: 20060218
  Serious: Yes (Hospitalization)
  Sender: FDA-Public Use
  Company Number: 2005065416

PATIENT
  Age: 67 Year
  Sex: Male
  Weight: 90 kg

DRUGS (5)
  1. XALATAN [Suspect]
     Indication: OCULAR HYPERTENSION
     Dates: start: 20030214, end: 20040101
  2. ACEBUTOLOL CHLORHYDRATE (ACEBUTOLOL) [Suspect]
     Indication: ILL-DEFINED DISORDER
     Dates: end: 20030101
  3. KARDEGIC (ACETYLSALICYLATE LYSINE) [Concomitant]
  4. MOEX (MOEXIPRIL) [Concomitant]
  5. PRAVASTATIN [Concomitant]

REACTIONS (2)
  - ACUTE RESPIRATORY FAILURE [None]
  - ASTHMA [None]
